FAERS Safety Report 8275762-6 (Version None)
Quarter: 2012Q2

REPORT INFORMATION
  Report Type: 
  Country: None (occurrence: None)
  Receive Date: 20120410
  Receipt Date: 20120410
  Transmission Date: 20120825
  Serious: Yes (Life-Threatening)
  Sender: FDA-Public Use
  Company Number: None

PATIENT
  Age: 53 Year
  Sex: Male
  Weight: 100 kg

DRUGS (1)
  1. LISINOPRIL AND HYDROCHLOROTHIAZIDE [Suspect]
     Indication: HYPERTENSION
     Dosage: MG PO
     Route: 048
     Dates: start: 20110805, end: 20111110

REACTIONS (6)
  - SWELLING FACE [None]
  - INFLUENZA [None]
  - ANGIOEDEMA [None]
  - LOSS OF CONSCIOUSNESS [None]
  - DISORIENTATION [None]
  - SWOLLEN TONGUE [None]
